APPROVED DRUG PRODUCT: DICLOFENAC SODIUM
Active Ingredient: DICLOFENAC SODIUM
Strength: 50MG
Dosage Form/Route: TABLET, DELAYED RELEASE;ORAL
Application: A074376 | Product #002
Applicant: CHARTWELL RX SCIENCES LLC
Approved: Sep 28, 1995 | RLD: No | RS: No | Type: DISCN